FAERS Safety Report 10149429 (Version 1)
Quarter: 2014Q2

REPORT INFORMATION
  Report Type: Spontaneous
  Country: CA (occurrence: CA)
  Receive Date: 20140502
  Receipt Date: 20140502
  Transmission Date: 20141212
  Serious: Yes (Hospitalization)
  Sender: FDA-Public Use
  Company Number: CA-ASTRAZENECA-2014SE28517

PATIENT
  Age: 80 Year
  Sex: Female
  Weight: 57 kg

DRUGS (5)
  1. ARIMIDEX [Suspect]
     Route: 048
  2. LUTEIN [Concomitant]
  3. OMEGA - 3 [Concomitant]
  4. VITAMIN D [Concomitant]
  5. ZOPICLONE [Concomitant]

REACTIONS (2)
  - Chest pain [Unknown]
  - Troponin increased [Unknown]
